FAERS Safety Report 7422702-5 (Version None)
Quarter: 2011Q2

REPORT INFORMATION
  Report Type: 
  Country: None (occurrence: None)
  Receive Date: 20110414
  Receipt Date: 20110414
  Transmission Date: 20111010
  Serious: Yes (Other)
  Sender: FDA-Public Use
  Company Number: None

PATIENT
  Age: 59 Year
  Sex: Male
  Weight: 89.8 kg

DRUGS (1)
  1. FENTANYL [Suspect]
     Dosage: 50 MCG OTHER OTHER
     Route: 050
     Dates: start: 20101217, end: 20110104

REACTIONS (1)
  - UNRESPONSIVE TO STIMULI [None]
